FAERS Safety Report 19856118 (Version 1)
Quarter: 2021Q3

REPORT INFORMATION
  Report Type: Spontaneous
  Country: IT (occurrence: IT)
  Receive Date: 20210920
  Receipt Date: 20210920
  Transmission Date: 20211014
  Serious: Yes (Other)
  Sender: FDA-Public Use
  Company Number: IT-TEVA-2021-IT-1953777

PATIENT
  Age: 49 Year
  Sex: Female

DRUGS (11)
  1. MACROGOL 4000 [Suspect]
     Active Substance: POLYETHYLENE GLYCOL 4000
     Route: 065
  2. NUROFEN [Suspect]
     Active Substance: IBUPROFEN
     Route: 065
  3. ZIRTEC [Suspect]
     Active Substance: CETIRIZINE HYDROCHLORIDE
     Route: 065
  4. ASPIRINA [Suspect]
     Active Substance: ASPIRIN
     Route: 065
  5. TORA?DOL [Suspect]
     Active Substance: KETOROLAC TROMETHAMINE
     Route: 065
  6. FENTANYL. [Suspect]
     Active Substance: FENTANYL
     Route: 065
  7. OPTALIDON [BUTALBITAL;CAFFEINE;PROPYPHENAZONE] [Suspect]
     Active Substance: BUTALBITAL\CAFFEINE\PROPYPHENAZONE
     Route: 065
  8. BRUFEN [Suspect]
     Active Substance: IBUPROFEN
     Route: 065
  9. MONURIL [Suspect]
     Active Substance: FOSFOMYCIN TROMETHAMINE
     Route: 065
  10. AUGMENTIN [Suspect]
     Active Substance: AMOXICILLIN\CLAVULANATE POTASSIUM
     Route: 048
  11. OKI [Suspect]
     Active Substance: KETOPROFEN LYSINE
     Route: 065

REACTIONS (6)
  - Vomiting [Unknown]
  - Loss of consciousness [Unknown]
  - Dizziness [Unknown]
  - Dysentery [Unknown]
  - Tachycardia [Unknown]
  - Tongue paralysis [Unknown]
